FAERS Safety Report 14882113 (Version 2)
Quarter: 2018Q2

REPORT INFORMATION
  Report Type: Spontaneous
  Country: GB (occurrence: GB)
  Receive Date: 20180511
  Receipt Date: 20180511
  Transmission Date: 20180711
  Serious: Yes (Hospitalization)
  Sender: FDA-Public Use
  Company Number: PHHY2018GB075910

PATIENT
  Age: 33 Year
  Sex: Male

DRUGS (3)
  1. PREDNISOLONE. [Suspect]
     Active Substance: PREDNISOLONE
     Indication: COLITIS ULCERATIVE
     Dosage: UNK
     Route: 048
  2. MESALAZINE [Concomitant]
     Active Substance: MESALAMINE
     Indication: COLITIS ULCERATIVE
     Dosage: 1 G, UNK
     Route: 048
  3. 6-MERCAPTOPURINE MONOHYDRATE [Suspect]
     Active Substance: MERCAPTOPURINE
     Indication: COLITIS ULCERATIVE
     Dosage: 75 MG, UNK
     Route: 065

REACTIONS (6)
  - Toxicity to various agents [Unknown]
  - Cytomegalovirus colitis [Recovered/Resolved]
  - Sepsis [Unknown]
  - Cytomegalovirus infection [Recovered/Resolved]
  - Bone marrow failure [Recovered/Resolved]
  - Hepatitis [Recovered/Resolved]
